FAERS Safety Report 10067916 (Version 2)
Quarter: 2014Q2

REPORT INFORMATION
  Report Type: Spontaneous
  Country: US (occurrence: US)
  Receive Date: 20140409
  Receipt Date: 20140523
  Transmission Date: 20141212
  Serious: Yes (Death, Life-Threatening, Hospitalization, Other)
  Sender: FDA-Public Use
  Company Number: US-MERCK-1404USA004169

PATIENT
  Sex: Male
  Weight: 95.24 kg

DRUGS (6)
  1. JANUVIA [Suspect]
     Indication: TYPE 2 DIABETES MELLITUS
     Dosage: 25 MG, QD
     Route: 048
     Dates: start: 20110502
  2. METFORMIN [Concomitant]
     Indication: TYPE 2 DIABETES MELLITUS
     Dosage: 1000 MG, BID
     Route: 048
  3. VITAMINS (UNSPECIFIED) [Concomitant]
     Indication: GENERAL PHYSICAL HEALTH DETERIORATION
     Dosage: UNK
     Dates: start: 1985, end: 2012
  4. ASPIRIN [Concomitant]
     Indication: CARDIAC DISORDER
     Dosage: UNK
     Dates: start: 1999, end: 2011
  5. GLUCOSAMINE [Concomitant]
     Indication: ARTHROPATHY
     Dosage: UNK
     Dates: start: 1996, end: 2012
  6. OMEGA-3 MARINE TRIGLYCERIDES [Concomitant]
     Indication: ARTHROPATHY
     Dosage: UNK
     Dates: start: 1996, end: 2012

REACTIONS (29)
  - Pancreatic carcinoma metastatic [Fatal]
  - Malignant ascites [Fatal]
  - Incarcerated inguinal hernia [Not Recovered/Not Resolved]
  - Inguinal hernia repair [Unknown]
  - Small intestinal obstruction [Unknown]
  - Small intestinal resection [Unknown]
  - Intestinal ischaemia [Not Recovered/Not Resolved]
  - Anaemia [Unknown]
  - Metastases to liver [Unknown]
  - Lymphadenopathy [Unknown]
  - Duodenal ulcer [Unknown]
  - Varices oesophageal [Unknown]
  - Portal hypertensive gastropathy [Unknown]
  - Gastrointestinal haemorrhage [Unknown]
  - Hepatocellular carcinoma [Unknown]
  - Colorectal cancer stage IV [Unknown]
  - Hepatic failure [Unknown]
  - Peritoneal carcinoma metastatic [Unknown]
  - Gastrointestinal carcinoma [Unknown]
  - Gastric ulcer haemorrhage [Unknown]
  - Gastrooesophageal reflux disease [Unknown]
  - Hepatic cirrhosis [Unknown]
  - Cellulitis [Unknown]
  - Hypertension [Unknown]
  - Hyperlipidaemia [Unknown]
  - Cardiac murmur [Unknown]
  - Malnutrition [Unknown]
  - Hypoalbuminaemia [Unknown]
  - Acidosis [Unknown]
